FAERS Safety Report 10130300 (Version 3)
Quarter: 2014Q2

REPORT INFORMATION
  Report Type: Spontaneous
  Country: US (occurrence: US)
  Receive Date: 20140428
  Receipt Date: 20140506
  Transmission Date: 20141212
  Serious: No
  Sender: FDA-Public Use
  Company Number: US-TEVA-477267USA

PATIENT
  Age: 65 Year
  Sex: Male
  Weight: 108.96 kg

DRUGS (1)
  1. PROAIR HFA [Suspect]
     Indication: VIRAL INFECTION
     Dates: start: 20140417, end: 20140418

REACTIONS (5)
  - Hypersensitivity [Recovered/Resolved]
  - Dyspnoea [Recovered/Resolved]
  - Heart rate increased [Recovered/Resolved]
  - Panic attack [Recovered/Resolved]
  - Malaise [Recovered/Resolved]
